FAERS Safety Report 12612196 (Version 1)
Quarter: 2016Q3

REPORT INFORMATION
  Report Type: Spontaneous
  Country: PL (occurrence: PL)
  Receive Date: 20160801
  Receipt Date: 20160801
  Transmission Date: 20161109
  Serious: Yes (Other)
  Sender: FDA-Public Use
  Company Number: PHHY2016PL103350

PATIENT
  Age: 62 Year
  Sex: Female
  Weight: 76 kg

DRUGS (1)
  1. INDAPAMIDE SANDOZ [Suspect]
     Active Substance: INDAPAMIDE
     Indication: HYPERTENSION
     Route: 048
     Dates: start: 20160325, end: 20160411

REACTIONS (3)
  - Rash papular [Recovering/Resolving]
  - Throat tightness [Recovering/Resolving]
  - Eyelid oedema [Recovering/Resolving]

NARRATIVE: CASE EVENT DATE: 20160411
